FAERS Safety Report 14868401 (Version 2)
Quarter: 2018Q2

REPORT INFORMATION
  Report Type: Spontaneous
  Country: US (occurrence: US)
  Receive Date: 20180509
  Receipt Date: 20180509
  Transmission Date: 20180711
  Serious: No
  Sender: FDA-Public Use
  Company Number: US-B.I. PHARMACEUTICALS,INC./RIDGEFIELD-2018-BI-024392

PATIENT
  Age: 69 Year
  Sex: Female
  Weight: 91 kg

DRUGS (1)
  1. COMBIVENT [Suspect]
     Active Substance: ALBUTEROL SULFATE\IPRATROPIUM BROMIDE
     Indication: BRONCHITIS
     Dosage: FORM STRENGTH: 18 MCG / 103 MCG; FORMULATION: INHALATION AEROSOL
     Route: 055
     Dates: start: 20180419, end: 20180421

REACTIONS (3)
  - Stomatitis [Not Recovered/Not Resolved]
  - Lip blister [Not Recovered/Not Resolved]
  - Off label use [Recovered/Resolved]

NARRATIVE: CASE EVENT DATE: 20180419
